FAERS Safety Report 25216461 (Version 5)
Quarter: 2025Q3

REPORT INFORMATION
  Report Type: Spontaneous
  Country: US (occurrence: US)
  Receive Date: 20250418
  Receipt Date: 20250703
  Transmission Date: 20251021
  Serious: No
  Sender: SANOFI AVENTIS
  Company Number: US-SA-2025SA112442

PATIENT
  Age: 11 Year
  Sex: Female

DRUGS (2)
  1. DUPIXENT [Suspect]
     Active Substance: DUPILUMAB
     Indication: Dermatitis atopic
     Dosage: 200 MG, QOW
     Route: 058
     Dates: start: 202503
  2. DUPIXENT [Suspect]
     Active Substance: DUPILUMAB
     Indication: Eczema

REACTIONS (11)
  - Alopecia [Unknown]
  - Eye swelling [Recovered/Resolved]
  - Pruritus [Recovering/Resolving]
  - Injection site pain [Unknown]
  - Dermatitis atopic [Unknown]
  - Eczema [Unknown]
  - Skin exfoliation [Recovering/Resolving]
  - Skin weeping [Recovering/Resolving]
  - Condition aggravated [Recovering/Resolving]
  - Incorrect dose administered [Unknown]
  - Therapeutic response shortened [Unknown]

NARRATIVE: CASE EVENT DATE: 20250101
